FAERS Safety Report 20340421 (Version 1)
Quarter: 2022Q1

REPORT INFORMATION
  Report Type: Spontaneous
  Country: US (occurrence: None)
  Receive Date: 20220117
  Receipt Date: 20220117
  Transmission Date: 20220423
  Serious: Yes (Other)
  Sender: FDA-Public Use
  Company Number: US-Merz Pharmaceuticals GmbH-22-00042

PATIENT
  Age: 54 Year
  Sex: Female

DRUGS (5)
  1. XEOMIN [Suspect]
     Active Substance: INCOBOTULINUMTOXINA
     Indication: Product used for unknown indication
  2. AUBAGIO [Suspect]
     Active Substance: TERIFLUNOMIDE
     Indication: Multiple sclerosis
     Dosage: 14 MG
     Route: 048
     Dates: start: 20151107, end: 2020
  3. BOTOX [Concomitant]
     Active Substance: ONABOTULINUMTOXINA
  4. IBUPROFEN [Concomitant]
     Active Substance: IBUPROFEN
  5. RITALIN [Concomitant]
     Active Substance: METHYLPHENIDATE HYDROCHLORIDE
     Dates: start: 202101

REACTIONS (8)
  - Multiple sclerosis relapse [Recovering/Resolving]
  - Stress [Unknown]
  - Insomnia [Unknown]
  - Eye contusion [Recovered/Resolved]
  - Eyelid ptosis [Recovered/Resolved]
  - Lip disorder [Recovered/Resolved]
  - Adverse reaction [Recovered/Resolved]
  - Vessel perforation [Recovered/Resolved]
